FAERS Safety Report 5162626-X (Version None)
Quarter: 2006Q4

REPORT INFORMATION
  Report Type: 
  Country: None (occurrence: None)
  Receive Date: 20061201
  Receipt Date: 20060921
  Transmission Date: 20070319
  Serious: Yes (Other)
  Sender: FDA-Public Use
  Company Number: GB-AMGEN-UK194542

PATIENT
  Age: 63 Year
  Sex: Female

DRUGS (2)
  1. MIMPARA [Suspect]
     Indication: HYPERPARATHYROIDISM SECONDARY
     Route: 048
     Dates: start: 20060711
  2. IOPROMIDE [Suspect]
     Route: 065

REACTIONS (1)
  - STEVENS-JOHNSON SYNDROME [None]
